FAERS Safety Report 16489319 (Version 2)
Quarter: 2019Q4

REPORT INFORMATION
  Report Type: Spontaneous
  Country: US (occurrence: US)
  Receive Date: 20190628
  Receipt Date: 20191112
  Transmission Date: 20200122
  Serious: Yes (Hospitalization, Other)
  Sender: FDA-Public Use
  Company Number: US-ASTRAZENECA-2019SE91305

PATIENT
  Age: 21057 Day
  Sex: Male

DRUGS (37)
  1. SIMVASTATIN. [Concomitant]
     Active Substance: SIMVASTATIN
  2. SUFENTA [Concomitant]
     Active Substance: SUFENTANIL CITRATE
  3. LOPRESSOR [Concomitant]
     Active Substance: METOPROLOL TARTRATE
  4. PROTONIX [Concomitant]
     Active Substance: PANTOPRAZOLE SODIUM
  5. ONGLYZA [Suspect]
     Active Substance: SAXAGLIPTIN HYDROCHLORIDE
     Indication: TYPE 2 DIABETES MELLITUS
     Route: 048
     Dates: start: 20180130, end: 20180719
  6. SILDENAFIL. [Concomitant]
     Active Substance: SILDENAFIL
  7. VERSED [Concomitant]
     Active Substance: MIDAZOLAM HYDROCHLORIDE
  8. DILAUDID [Concomitant]
     Active Substance: HYDROMORPHONE HYDROCHLORIDE
  9. ONGLYZA [Suspect]
     Active Substance: SAXAGLIPTIN HYDROCHLORIDE
     Indication: TYPE 2 DIABETES MELLITUS
     Dosage: SAXAGLIPTIN HYDROCHLORIDE
     Route: 048
     Dates: start: 20180130
  10. PERIDEX [Concomitant]
     Active Substance: CHLORHEXIDINE GLUCONATE
  11. PEPCID [Concomitant]
     Active Substance: FAMOTIDINE
  12. NALOXONE [Concomitant]
     Active Substance: NALOXONE
  13. ZOLPIDEM TARTRATE. [Concomitant]
     Active Substance: ZOLPIDEM TARTRATE
  14. AMIDATE [Concomitant]
     Active Substance: ETOMIDATE
  15. ZEMURON [Concomitant]
     Active Substance: ROCURONIUM BROMIDE
  16. KOMBIGLYZE XR [Suspect]
     Active Substance: METFORMIN HYDROCHLORIDE\SAXAGLIPTIN HYDROCHLORIDE
     Indication: TYPE 2 DIABETES MELLITUS
     Route: 048
  17. GABAPENTIN. [Concomitant]
     Active Substance: GABAPENTIN
  18. GLIPIZIDE. [Concomitant]
     Active Substance: GLIPIZIDE
  19. MELATONIN [Concomitant]
     Active Substance: MELATONIN
  20. OMEPRAZOLE. [Concomitant]
     Active Substance: OMEPRAZOLE
  21. AZITHROMYCIN ANHYDROUS. [Concomitant]
     Active Substance: AZITHROMYCIN ANHYDROUS
  22. ZOFRAN [Concomitant]
     Active Substance: ONDANSETRON HYDROCHLORIDE
  23. KEFZOL [Concomitant]
     Active Substance: CEFAZOLIN SODIUM
  24. CARDENE [Concomitant]
     Active Substance: NICARDIPINE HYDROCHLORIDE
  25. ONGLYZA [Suspect]
     Active Substance: SAXAGLIPTIN HYDROCHLORIDE
     Indication: TYPE 2 DIABETES MELLITUS
     Route: 048
     Dates: start: 20180130, end: 20181017
  26. LISINOPRIL. [Concomitant]
     Active Substance: LISINOPRIL
  27. METFORMIN HYDROCHLORIDE. [Concomitant]
     Active Substance: METFORMIN HYDROCHLORIDE
  28. FLUNISOLIDE. [Concomitant]
     Active Substance: FLUNISOLIDE
  29. ASPIRIN. [Concomitant]
     Active Substance: ASPIRIN
  30. LIPITOR [Concomitant]
     Active Substance: ATORVASTATIN CALCIUM
  31. MULTIVITAMINS [Concomitant]
     Active Substance: VITAMINS
  32. HYDROCODONE-ACETAMINOPHEN [Concomitant]
     Active Substance: ACETAMINOPHEN\HYDROCODONE
  33. CYCLOBENZAPRINE. [Concomitant]
     Active Substance: CYCLOBENZAPRINE
  34. TEMAZEPAM. [Concomitant]
     Active Substance: TEMAZEPAM
  35. PRAVASTATIN. [Concomitant]
     Active Substance: PRAVASTATIN
  36. SUBLIMAZE [Concomitant]
     Active Substance: FENTANYL CITRATE
  37. LASIX [Concomitant]
     Active Substance: FUROSEMIDE

REACTIONS (5)
  - Cardiovascular disorder [Unknown]
  - Acute myocardial infarction [Unknown]
  - Cardiac failure [Unknown]
  - Cardiac failure congestive [Unknown]
  - Myocardial infarction [Unknown]

NARRATIVE: CASE EVENT DATE: 20180619
